FAERS Safety Report 5059421-9 (Version None)
Quarter: 2006Q3

REPORT INFORMATION
  Report Type: 
  Country: None (occurrence: None)
  Receive Date: 20060718
  Receipt Date: 20060710
  Transmission Date: 20061208
  Serious: Yes (Hospitalization)
  Sender: FDA-Public Use
  Company Number: THQ2006A00458

PATIENT
  Age: 68 Year
  Sex: Male

DRUGS (2)
  1. LUPRON [Suspect]
     Indication: PROSTATE CANCER
     Dosage: 11.25 MG (11.25 MG, 1 IN 3 M); SUBCUTANEOUS
     Route: 058
     Dates: start: 20060201
  2. GLIBENCLAMIDE [Concomitant]

REACTIONS (1)
  - DIABETIC COMA [None]
